FAERS Safety Report 13325191 (Version 1)
Quarter: 2017Q1

REPORT INFORMATION
  Report Type: Spontaneous
  Country: US (occurrence: US)
  Receive Date: 20170310
  Receipt Date: 20170310
  Transmission Date: 20170428
  Serious: Yes (Hospitalization, Other)
  Sender: FDA-Public Use
  Company Number: US-ELI_LILLY_AND_COMPANY-US201607007596

PATIENT
  Sex: Female

DRUGS (3)
  1. CYMBALTA [Suspect]
     Active Substance: DULOXETINE HYDROCHLORIDE
     Indication: PRODUCT USED FOR UNKNOWN INDICATION
     Dosage: UNK, UNKNOWN
     Route: 048
     Dates: start: 20050607, end: 20131120
  2. ANTIVERT                           /00007101/ [Concomitant]
     Active Substance: MECLIZINE MONOHYDROCHLORIDE\NIACIN
     Indication: PRODUCT USED FOR UNKNOWN INDICATION
     Dosage: UNK, UNKNOWN
     Route: 065
  3. WELLBUTRIN [Concomitant]
     Active Substance: BUPROPION HYDROCHLORIDE
     Indication: PRODUCT USED FOR UNKNOWN INDICATION
     Dosage: UNK, UNKNOWN
     Route: 065

REACTIONS (26)
  - Nausea [Unknown]
  - Nightmare [Unknown]
  - Affect lability [Unknown]
  - Sensory disturbance [Unknown]
  - Dysphoria [Unknown]
  - Irritability [Unknown]
  - Drug withdrawal syndrome [Unknown]
  - Suicidal ideation [Unknown]
  - Dizziness [Unknown]
  - Vomiting [Unknown]
  - Vertigo [Recovered/Resolved]
  - Lethargy [Unknown]
  - Gastric dilatation [Unknown]
  - Fatigue [Unknown]
  - Anxiety [Unknown]
  - Insomnia [Unknown]
  - Dehydration [Unknown]
  - Feeling abnormal [Unknown]
  - Back pain [Unknown]
  - Depression [Unknown]
  - Asthenia [Unknown]
  - Confusional state [Unknown]
  - Paraesthesia [Unknown]
  - Diarrhoea [Unknown]
  - Agitation [Unknown]
  - Headache [Unknown]
